FAERS Safety Report 4479515-6 (Version None)
Quarter: 2004Q4

REPORT INFORMATION
  Report Type: 
  Country: None (occurrence: None)
  Receive Date: 20041015
  Receipt Date: 20041008
  Transmission Date: 20050328
  Serious: Yes (Death, Other)
  Sender: FDA-Public Use
  Company Number: 2004-09-1656

PATIENT
  Age: 14 Year
  Sex: Male

DRUGS (3)
  1. REBETOL [Suspect]
     Indication: ADENOVIRUS INFECTION
     Dosage: ORAL
     Route: 048
  2. GANCICLOVIR [Suspect]
     Indication: ADENOVIRUS INFECTION
  3. VIDARABINE [Suspect]
     Indication: ADENOVIRUS INFECTION

REACTIONS (13)
  - DIARRHOEA [None]
  - GRAFT VERSUS HOST DISEASE [None]
  - HEPATIC FIBROSIS [None]
  - KIDNEY INFECTION [None]
  - LUNG INFECTION [None]
  - MULTI-ORGAN DISORDER [None]
  - PANCYTOPENIA [None]
  - PNEUMONIA [None]
  - PSYCHIATRIC SYMPTOM [None]
  - RASH [None]
  - RENAL FAILURE [None]
  - THROMBOTIC MICROANGIOPATHY [None]
  - VIRAL INFECTION [None]
